FAERS Safety Report 6635378-1 (Version None)
Quarter: 2010Q1

REPORT INFORMATION
  Report Type: 
  Country: None (occurrence: None)
  Receive Date: 20100311
  Receipt Date: 20100311
  Transmission Date: 20100710
  Serious: Yes (Other)
  Sender: FDA-Public Use
  Company Number: None

PATIENT
  Age: 26 Year
  Sex: Female
  Weight: 59.8748 kg

DRUGS (1)
  1. DIFFERIN [Suspect]

REACTIONS (2)
  - ERYTHEMA [None]
  - SKIN EXFOLIATION [None]
